FAERS Safety Report 6974325-X (Version None)
Quarter: 2010Q3

REPORT INFORMATION
  Report Type: 
  Country: None (occurrence: None)
  Receive Date: 20100909
  Receipt Date: 20100830
  Transmission Date: 20110219
  Serious: Yes (Disabling)
  Sender: FDA-Public Use
  Company Number: PHHY2010US44483

PATIENT
  Sex: Female

DRUGS (1)
  1. RECLAST [Suspect]
     Dosage: UNK
     Route: 042
     Dates: start: 20100225

REACTIONS (7)
  - ARTHRALGIA [None]
  - ARTHRITIS [None]
  - CHONDROCALCINOSIS PYROPHOSPHATE [None]
  - GAIT DISTURBANCE [None]
  - MUSCULOSKELETAL PAIN [None]
  - PAIN IN EXTREMITY [None]
  - PAIN IN JAW [None]
